FAERS Safety Report 5104080-X (Version None)
Quarter: 2006Q3

REPORT INFORMATION
  Report Type: 
  Country: None (occurrence: None)
  Receive Date: 20060911
  Receipt Date: 20060829
  Transmission Date: 20061208
  Serious: Yes (Hospitalization)
  Sender: FDA-Public Use
  Company Number: 2006106892

PATIENT
  Age: 4 Year
  Sex: Female
  Weight: 14.2 kg

DRUGS (7)
  1. SOLU-MEDROL [Suspect]
     Indication: KAWASAKI'S DISEASE
     Dosage: 20 MG/KG (20 MG/KG, 1), INTRAVENOUS
     Route: 042
     Dates: start: 20050916, end: 20050916
  2. AZITHROMYCIN (AZITHROMYICIN) [Concomitant]
  3. DIAZEPAM [Concomitant]
  4. IMMUNE GLOBULIN INTRAVENOUS (HUMAN) [Concomitant]
  5. HEPARIN [Concomitant]
  6. ASPIRIN [Concomitant]
  7. ANTIBIOTICS (ANTIBIOTICS) [Concomitant]

REACTIONS (4)
  - COORDINATION ABNORMAL [None]
  - DEPRESSION [None]
  - ELECTROENCEPHALOGRAM ABNORMAL [None]
  - SINUS BRADYCARDIA [None]
